FAERS Safety Report 9934866 (Version 1)
Quarter: 2014Q1

REPORT INFORMATION
  Report Type: Spontaneous
  Country: PL (occurrence: PL)
  Receive Date: 20140228
  Receipt Date: 20140228
  Transmission Date: 20141002
  Serious: Yes (Other)
  Sender: FDA-Public Use
  Company Number: PHHY2014PL021225

PATIENT
  Sex: Female

DRUGS (5)
  1. METOPROLOL [Suspect]
     Indication: HYPERTENSION
  2. METHYLDOPA [Suspect]
     Indication: HYPERTENSION
  3. PREDNISONE [Suspect]
     Dosage: 5 MG, DAILY
  4. ENOXAPARIN [Suspect]
     Dosage: 40 MG, DAILY
  5. THYROXINE [Suspect]

REACTIONS (5)
  - Blood pressure increased [Unknown]
  - Proteinuria [Unknown]
  - Hepatic enzyme increased [Unknown]
  - Maternal exposure during pregnancy [Unknown]
  - Normal newborn [Unknown]
